FAERS Safety Report 21586939 (Version 1)
Quarter: 2022Q4

REPORT INFORMATION
  Report Type: Spontaneous
  Country: US (occurrence: None)
  Receive Date: 20221110
  Receipt Date: 20221110
  Transmission Date: 20230112
  Serious: Yes (Hospitalization)
  Sender: FDA-Public Use
  Company Number: None

PATIENT
  Sex: Male
  Weight: 72.71 kg

DRUGS (10)
  1. CAPECITABINE [Suspect]
     Active Substance: CAPECITABINE
     Indication: Malignant anorectal neoplasm
     Dosage: FREQUENCY : TWICE A DAY;?
     Route: 048
  2. CAPECITABINE [Suspect]
     Active Substance: CAPECITABINE
     Indication: Malignant anorectal neoplasm
     Dosage: FREQUENCY : TWICE A DAY;?
     Route: 048
  3. IBUPROFEN [Concomitant]
  4. ASPIRIN [Concomitant]
  5. ALEVE [Concomitant]
  6. FISH OIL [Concomitant]
  7. GLUCOSAMINE CHONDROITIN [Concomitant]
  8. CALCIUM GUCONATE [Concomitant]
  9. MULTIVITAMIN [Concomitant]
  10. LOSARTAN POTASSIUM [Concomitant]

REACTIONS (1)
  - Myocardial infarction [None]
